FAERS Safety Report 4274215-X (Version None)
Quarter: 2004Q1

REPORT INFORMATION
  Report Type: 
  Country: None (occurrence: None)
  Receive Date: 20040115
  Receipt Date: 20040105
  Transmission Date: 20041129
  Serious: Yes (Disabling)
  Sender: FDA-Public Use
  Company Number: 2002-03028

PATIENT
  Age: 56 Year
  Sex: Female

DRUGS (3)
  1. CLINDAMYCIN (WATSON LABORATORIES) (CLINDAMYCIN HYDROCHLORIDE) CAPSULE, [Suspect]
     Indication: INFECTION
     Dosage: 2 CAPSUL, QID, ORAL
     Route: 048
     Dates: start: 20020722, end: 20020724
  2. PEPCID [Concomitant]
  3. MYLANTA (ALUMINIUM HYDROXIDE GEL, DRIED, SIMETICONE) [Concomitant]

REACTIONS (13)
  - ANXIETY [None]
  - DIZZINESS [None]
  - EATING DISORDER [None]
  - FEELING ABNORMAL [None]
  - GASTRITIS [None]
  - GASTROOESOPHAGEAL REFLUX DISEASE [None]
  - INSOMNIA [None]
  - LOSS OF CONSCIOUSNESS [None]
  - MYALGIA [None]
  - NAUSEA [None]
  - OESOPHAGITIS [None]
  - PANIC ATTACK [None]
  - WEIGHT DECREASED [None]
